FAERS Safety Report 4335656-5 (Version None)
Quarter: 2004Q2

REPORT INFORMATION
  Report Type: 
  Country: None (occurrence: None)
  Receive Date: 20040406
  Receipt Date: 20040324
  Transmission Date: 20050107
  Serious: Yes (Other)
  Sender: FDA-Public Use
  Company Number: HQWYE144026MAR04

PATIENT
  Age: 33 Year
  Weight: 59.02 kg

DRUGS (3)
  1. EFFEXOR [Suspect]
     Indication: DEPRESSION
     Dosage: 150; 75 MG 1X PER 1 DAY, ORAL
     Route: 048
     Dates: start: 20030301, end: 20040301
  2. EFFEXOR [Suspect]
     Indication: DEPRESSION
     Dosage: 150; 75 MG 1X PER 1 DAY, ORAL
     Route: 048
     Dates: start: 20040301, end: 20040318
  3. EFFEXOR [Suspect]
     Indication: DEPRESSION
     Dosage: 150; 75 MG 1X PER 1 DAY, ORAL
     Route: 048
     Dates: start: 20040323

REACTIONS (3)
  - DRUG WITHDRAWAL SYNDROME [None]
  - FEELING ABNORMAL [None]
  - HAEMATEMESIS [None]
